FAERS Safety Report 18384791 (Version 5)
Quarter: 2021Q3

REPORT INFORMATION
  Report Type: Report from Study
  Country: US (occurrence: US)
  Receive Date: 20201014
  Receipt Date: 20210823
  Transmission Date: 20211014
  Serious: Yes (Other)
  Sender: FDA-Public Use
  Company Number: NVSC2020US270780

PATIENT
  Sex: Male

DRUGS (1)
  1. KESIMPTA [Suspect]
     Active Substance: OFATUMUMAB
     Indication: MULTIPLE SCLEROSIS
     Dosage: 20 MG, QW
     Route: 058
     Dates: start: 20201006

REACTIONS (7)
  - Malaise [Unknown]
  - Limb discomfort [Unknown]
  - Pyrexia [Unknown]
  - Chills [Unknown]
  - Visual impairment [Unknown]
  - Mental impairment [Unknown]
  - Influenza like illness [Unknown]
